FAERS Safety Report 17472714 (Version 1)
Quarter: 2020Q1

REPORT INFORMATION
  Report Type: Spontaneous
  Country: US (occurrence: US)
  Receive Date: 20200227
  Receipt Date: 20200227
  Transmission Date: 20200409
  Serious: Yes (Other)
  Sender: FDA-Public Use
  Company Number: None

PATIENT
  Age: 81 Year
  Sex: Male
  Weight: 55.35 kg

DRUGS (10)
  1. WARFARIN 5MG [Concomitant]
     Active Substance: WARFARIN
  2. ASPIRIN 81MG [Concomitant]
     Active Substance: ASPIRIN
  3. ISOSORBIDE MONONITRATE 30MG [Concomitant]
     Active Substance: ISOSORBIDE MONONITRATE
  4. CAPECITABINE. [Suspect]
     Active Substance: CAPECITABINE
     Indication: OESOPHAGEAL CARCINOMA
     Route: 048
     Dates: start: 20200122, end: 20200215
  5. SUCRALFATE 1GM [Concomitant]
  6. AMLODIPINE [Concomitant]
     Active Substance: AMLODIPINE BESYLATE
  7. CARVEDILOL 12.5MG [Concomitant]
     Active Substance: CARVEDILOL
  8. FERROUS SULFATE 325MG [Concomitant]
     Active Substance: FERROUS SULFATE
  9. ATORVASTATIN 40MG [Concomitant]
     Active Substance: ATORVASTATIN
  10. VALSARTAN 80MG [Concomitant]
     Active Substance: VALSARTAN

REACTIONS (1)
  - Hospice care [None]

NARRATIVE: CASE EVENT DATE: 20200215
